FAERS Safety Report 5215266-8 (Version None)
Quarter: 2007Q1

REPORT INFORMATION
  Report Type: 
  Country: None (occurrence: None)
  Receive Date: 20061122
  Receipt Date: 20060313
  Transmission Date: 20070707
  Serious: No
  Sender: FDA-Public Use
  Company Number: HQWYE341115MAR06

PATIENT
  Age: 59 Year
  Sex: Female

DRUGS (5)
  1. PREMARIN [Suspect]
     Dosage: 1 APPLICATOR 1X PER 1 DAY, VAGINAL
     Route: 067
     Dates: start: 20060303, end: 20060306
  2. LEXAPRO [Concomitant]
  3. ROBITUSSIN COUGH (DEXTROMETHORPHAN HYDROBROMIDE) [Concomitant]
  4. CALCIUM CITRATE [Concomitant]
  5. VITAMIN D [Concomitant]

REACTIONS (3)
  - ABDOMINAL PAIN [None]
  - VAGINAL DISORDER [None]
  - VAGINAL SWELLING [None]
